FAERS Safety Report 20828676 (Version 2)
Quarter: 2022Q4

REPORT INFORMATION
  Report Type: Spontaneous
  Country: US (occurrence: None)
  Receive Date: 20220513
  Receipt Date: 20221006
  Transmission Date: 20230113
  Serious: Yes (Death, Hospitalization, Other)
  Sender: FDA-Public Use
  Company Number: 2022A182965

PATIENT
  Age: 81 Year
  Sex: Male
  Weight: 82.6 kg

DRUGS (2)
  1. ANDEXXA [Suspect]
     Active Substance: ANDEXANET ALFA
     Indication: Procoagulant therapy
     Route: 040
  2. APIXABAN [Suspect]
     Active Substance: APIXABAN
     Route: 065

REACTIONS (5)
  - Death [Fatal]
  - Hydrocephalus [Unknown]
  - Oedema [Unknown]
  - Cerebral mass effect [Unknown]
  - Acute myocardial infarction [Unknown]
